FAERS Safety Report 15120654 (Version 2)
Quarter: 2018Q3

REPORT INFORMATION
  Report Type: Spontaneous
  Country: US (occurrence: US)
  Receive Date: 20180709
  Receipt Date: 20180710
  Transmission Date: 20181010
  Serious: Yes (Hospitalization)
  Sender: FDA-Public Use
  Company Number: US-PFIZER INC-2018273371

PATIENT
  Age: 82 Year
  Sex: Female
  Weight: 108.4 kg

DRUGS (3)
  1. IBRANCE [Suspect]
     Active Substance: PALBOCICLIB
     Indication: BREAST CANCER STAGE IV
     Dosage: 125 MG, UNK
  2. IBRANCE [Interacting]
     Active Substance: PALBOCICLIB
     Dosage: 100 MG, UNK
  3. CIPRO [Interacting]
     Active Substance: CIPROFLOXACIN HYDROCHLORIDE
     Dosage: UNK

REACTIONS (2)
  - Drug interaction [Recovering/Resolving]
  - Drug effect decreased [Recovering/Resolving]
